FAERS Safety Report 8683606 (Version 3)
Quarter: 2012Q4

REPORT INFORMATION
  Report Type: Report from Study
  Country: CA (occurrence: CA)
  Receive Date: 20120726
  Receipt Date: 20120918
  Transmission Date: 20130627
  Serious: Yes (Death, Life-Threatening, Hospitalization, Other)
  Sender: FDA-Public Use
  Company Number: CA-GENZYME-THYM-1003143

PATIENT
  Age: 53 Year
  Sex: Female
  Weight: 90 kg

DRUGS (14)
  1. THYMOGLOBULINE [Suspect]
     Indication: PROPHYLAXIS AGAINST GRAFT VERSUS HOST DISEASE
     Dosage: 0.5 mg/kg, once
     Route: 042
     Dates: start: 20111206, end: 20111206
  2. THYMOGLOBULINE [Suspect]
     Dosage: 2 mg/kg, once
     Route: 042
     Dates: start: 20111207, end: 20111207
  3. THYMOGLOBULINE [Suspect]
     Dosage: 2 mg/kg, once
     Route: 042
     Dates: start: 20111209, end: 20111209
  4. PREDNISONE [Concomitant]
     Indication: ACUTE GRAFT VERSUS HOST DISEASE
     Dosage: UNK
     Route: 065
  5. CYCLOSPORINE [Concomitant]
     Indication: PRODUCT USED FOR UNKNOWN INDICATION
     Dosage: UNK
     Route: 065
  6. SEPTRA [Concomitant]
     Indication: PRODUCT USED FOR UNKNOWN INDICATION
     Dosage: UNK
     Route: 065
  7. VALTREX [Concomitant]
     Indication: PRODUCT USED FOR UNKNOWN INDICATION
     Dosage: UNK
     Route: 065
  8. FLUCONAZOLE [Concomitant]
     Indication: PRODUCT USED FOR UNKNOWN INDICATION
     Dosage: UNK
     Route: 065
  9. ZANTAC [Concomitant]
     Indication: PRODUCT USED FOR UNKNOWN INDICATION
     Dosage: UNK
     Route: 065
  10. MAGNESIUM [Concomitant]
     Indication: PRODUCT USED FOR UNKNOWN INDICATION
     Dosage: UNK
     Route: 065
  11. METOPROLOL [Concomitant]
     Indication: PRODUCT USED FOR UNKNOWN INDICATION
     Dosage: UNK
     Route: 065
  12. OXYBUTYNIN [Concomitant]
     Indication: PRODUCT USED FOR UNKNOWN INDICATION
     Dosage: UNK
     Route: 065
  13. TYLENOL NO. 3 [Concomitant]
     Indication: PRODUCT USED FOR UNKNOWN INDICATION
     Dosage: UNK
     Route: 065
  14. PENTAMIDINE [Concomitant]
     Indication: PRODUCT USED FOR UNKNOWN INDICATION
     Dosage: UNK
     Route: 065

REACTIONS (21)
  - Gastrointestinal erosion [Fatal]
  - Lung infiltration [Fatal]
  - Gastrointestinal necrosis [Fatal]
  - Bone marrow necrosis [Fatal]
  - Adhesion [Fatal]
  - Respiratory failure [Fatal]
  - Multi-organ failure [Fatal]
  - Blood lactate dehydrogenase increased [Fatal]
  - Bone marrow failure [Fatal]
  - Renal tubular necrosis [Fatal]
  - Fibrosis [Fatal]
  - Pyrexia [Fatal]
  - Dyspnoea [Fatal]
  - Toxoplasmosis [Fatal]
  - Epstein-Barr virus infection [Fatal]
  - Leukopenia [Fatal]
  - Cough [Fatal]
  - Uterine polyp [Fatal]
  - Ecchymosis [Fatal]
  - Aortic arteriosclerosis [Fatal]
  - Hepatic steatosis [Fatal]
